FAERS Safety Report 8078987-8 (Version None)
Quarter: 2012Q1

REPORT INFORMATION
  Report Type: 
  Country: None (occurrence: None)
  Receive Date: 20120128
  Receipt Date: 20110621
  Transmission Date: 20120608
  Serious: No
  Sender: FDA-Public Use
  Company Number: US-ABBOTT-11P-163-0734147-00

PATIENT
  Age: 69 Year
  Sex: Female

DRUGS (5)
  1. DOXEPIN [Concomitant]
     Indication: INSOMNIA
  2. METFFORMIN HYDROCHLORIDE [Concomitant]
     Indication: DIABETES MELLITUS
     Dates: start: 20101101
  3. BENADRYL [Concomitant]
     Indication: INSOMNIA
  4. HUMIRA [Suspect]
     Indication: PSORIATIC ARTHROPATHY
     Dates: start: 20110301, end: 20110405
  5. METOPROLOL SUCCINATE [Concomitant]
     Indication: HYPERTENSION
     Dates: start: 20090101

REACTIONS (2)
  - RASH [None]
  - INSOMNIA [None]
